FAERS Safety Report 6220548-7 (Version None)
Quarter: 2009Q2

REPORT INFORMATION
  Report Type: 
  Country: None (occurrence: None)
  Receive Date: 20090603
  Receipt Date: 20090529
  Transmission Date: 20091009
  Serious: Yes (Hospitalization)
  Sender: FDA-Public Use
  Company Number: CHPA2009US12462

PATIENT
  Age: 51 Year
  Sex: Male
  Weight: 84.8 kg

DRUGS (3)
  1. WALGREEN'S  (NICOTINE) TRANS-THERAPEUTIC-SYSTEM [Suspect]
     Indication: SMOKING CESSATION THERAPY
     Dosage: 21 MG, QD, TRANSDERMAL ; 21 MG, QD, TRANSDERMAL
     Route: 062
     Dates: start: 20090314, end: 20090521
  2. WALGREEN'S  (NICOTINE) TRANS-THERAPEUTIC-SYSTEM [Suspect]
     Indication: SMOKING CESSATION THERAPY
     Dosage: 21 MG, QD, TRANSDERMAL ; 21 MG, QD, TRANSDERMAL
     Route: 062
     Dates: start: 20090528
  3. WELLBUTRIN [Concomitant]

REACTIONS (3)
  - HYPOTENSION [None]
  - INAPPROPRIATE SCHEDULE OF DRUG ADMINISTRATION [None]
  - TREATMENT NONCOMPLIANCE [None]
